FAERS Safety Report 8180380-4 (Version None)
Quarter: 2012Q1

REPORT INFORMATION
  Report Type: 
  Country: None (occurrence: None)
  Receive Date: 20120302
  Receipt Date: 20120217
  Transmission Date: 20120608
  Serious: Yes (Hospitalization)
  Sender: FDA-Public Use
  Company Number: NZ-MYLANLABS-2012S1004011

PATIENT
  Age: 50 Year
  Sex: Female

DRUGS (6)
  1. VALPROIC ACID [Concomitant]
     Route: 065
  2. BENZTROPINE MESYLATE [Concomitant]
     Route: 065
  3. METOPROLOL SUCCINATE [Concomitant]
     Dosage: CR METOPROLOL 95MG TWICE DAILY
  4. CLOZAPINE [Suspect]
     Indication: SCHIZOAFFECTIVE DISORDER
     Dosage: 300 MG/DAY
     Route: 065
  5. FELODIPINE [Concomitant]
     Dosage: ER FELODIPINE 10 MG/DAY
  6. BENDROFLUMETHIAZIDE [Concomitant]
     Dosage: 2.5 MG/DAY
     Route: 065

REACTIONS (5)
  - URINARY INCONTINENCE [None]
  - SOMNOLENCE [None]
  - DYSARTHRIA [None]
  - TOXICITY TO VARIOUS AGENTS [None]
  - DYSPNOEA [None]
